FAERS Safety Report 10458537 (Version 1)
Quarter: 2014Q3

REPORT INFORMATION
  Report Type: Spontaneous
  Country: US (occurrence: None)
  Receive Date: 20140916
  Receipt Date: 20140916
  Transmission Date: 20150326
  Serious: Yes (Other)
  Sender: FDA-Public Use
  Company Number: None

PATIENT
  Age: 38 Year
  Sex: Male
  Weight: 99.79 kg

DRUGS (1)
  1. PREDNISONE. [Suspect]
     Active Substance: PREDNISONE
     Indication: MIDDLE EAR EFFUSION
     Dosage: 2 ONCE DAILY
     Route: 048
     Dates: start: 20140906, end: 20140911

REACTIONS (2)
  - IIIrd nerve paralysis [None]
  - Diplopia [None]

NARRATIVE: CASE EVENT DATE: 20140915
